FAERS Safety Report 24618631 (Version 1)
Quarter: 2024Q4

REPORT INFORMATION
  Report Type: Spontaneous
  Country: US (occurrence: None)
  Receive Date: 20241113
  Receipt Date: 20241113
  Transmission Date: 20250115
  Serious: No
  Sender: Public
  Company Number: None

PATIENT
  Age: 72 Year
  Sex: Female
  Weight: 67.5 kg

DRUGS (31)
  1. CUVITRU [Suspect]
     Active Substance: HUMAN IMMUNOGLOBULIN G
     Indication: Secondary immunodeficiency
     Dosage: OTHER QUANTITY : 1 10G BOTTLE?OTHER FREQUENCY : 1/ WEEK?
     Route: 058
     Dates: start: 20241104, end: 20241111
  2. Medical vest for bronchiectasis [Concomitant]
  3. SERTRALINE [Concomitant]
     Active Substance: SERTRALINE HYDROCHLORIDE
  4. ALBUTEROL [Concomitant]
     Active Substance: ALBUTEROL
  5. LEVOTHYROXINE [Concomitant]
     Active Substance: LEVOTHYROXINE
  6. FLUTICASONE [Concomitant]
     Active Substance: FLUTICASONE
  7. ZYRTEC [Concomitant]
     Active Substance: CETIRIZINE HYDROCHLORIDE
  8. MIRALAX [Concomitant]
     Active Substance: POLYETHYLENE GLYCOL 3350
  9. CYCLOSPORINE [Concomitant]
     Active Substance: CYCLOSPORINE
  10. PROLIA [Concomitant]
     Active Substance: DENOSUMAB
  11. DILTIAZEM [Concomitant]
     Active Substance: DILTIAZEM
  12. NEXIUM [Concomitant]
     Active Substance: ESOMEPRAZOLE MAGNESIUM
  13. ALBUTEROL [Concomitant]
     Active Substance: ALBUTEROL
  14. PRAVASTATIN [Concomitant]
     Active Substance: PRAVASTATIN
  15. SYMBICORT [Concomitant]
     Active Substance: BUDESONIDE\FORMOTEROL FUMARATE DIHYDRATE
  16. AZITHROMYCIN [Concomitant]
     Active Substance: AZITHROMYCIN
  17. NEXIUM [Concomitant]
     Active Substance: ESOMEPRAZOLE MAGNESIUM
  18. TUMS [Concomitant]
     Active Substance: CALCIUM CARBONATE
  19. VITAMINS [Concomitant]
     Active Substance: VITAMINS
  20. calcuim [Concomitant]
  21. VITAMIN D3 [Concomitant]
     Active Substance: CHOLECALCIFEROL
  22. BIOTIN [Concomitant]
     Active Substance: BIOTIN
  23. FLAXSEED [Concomitant]
     Active Substance: FLAX SEED
  24. COENZYME Q10 [Concomitant]
     Active Substance: DIETARY SUPPLEMENT\UBIDECARENONE
  25. PROBIOTICS NOS [Concomitant]
     Active Substance: PROBIOTICS NOS
  26. DIETARY SUPPLEMENT [Concomitant]
     Active Substance: DIETARY SUPPLEMENT
  27. DEMANNOSE [Concomitant]
     Active Substance: DEMANNOSE
  28. OCUVITE [Concomitant]
     Active Substance: VITAMINS
  29. B12 [Concomitant]
  30. FIBERCON [Concomitant]
     Active Substance: CALCIUM POLYCARBOPHIL
  31. Dynamic brain pill [Concomitant]

REACTIONS (9)
  - Infusion related reaction [None]
  - Headache [None]
  - Injection site pruritus [None]
  - Injection site swelling [None]
  - Injection site induration [None]
  - Fatigue [None]
  - Skin striae [None]
  - Abdominal pain upper [None]
  - Refusal of treatment by patient [None]

NARRATIVE: CASE EVENT DATE: 20241104
